FAERS Safety Report 4565007-2 (Version None)
Quarter: 2005Q1

REPORT INFORMATION
  Report Type: 
  Country: None (occurrence: None)
  Receive Date: 20050126
  Receipt Date: 20050113
  Transmission Date: 20050727
  Serious: Yes (Hospitalization)
  Sender: FDA-Public Use
  Company Number: 2005015677

PATIENT
  Age: 81 Year
  Sex: Female
  Weight: 68 kg

DRUGS (11)
  1. CELEBREX [Suspect]
     Indication: ILL-DEFINED DISORDER
     Dosage: TRANSDERMAL
     Route: 063
  2. DYNASTAT          (PARECOXIB SODIUM) [Suspect]
     Indication: ILL-DEFINED DISORDER
     Dosage: INTRAMUSCULAR
     Route: 030
  3. BEXTRA [Suspect]
     Indication: ILL-DEFINED DISORDER
     Dosage: ORAL
     Route: 048
  4. DOXAZOSIN MESYLATE [Concomitant]
  5. IRBESARTAN [Concomitant]
  6. CLOPIDOGREL BISULFATE [Concomitant]
  7. FUROSEMIDE [Concomitant]
  8. EZETIMIBE             (EZETIMIBE) [Concomitant]
  9. LEKOVIT CA                (CALCIUM CARBONATE, COLECALCIVEROL) [Concomitant]
  10. RISEDRONATE SODIUM            (RISEDRONATE SODIUM) [Concomitant]
  11. ALENDORNATE SODIUM                  (ALENDRONATE SODIUM) [Concomitant]

REACTIONS (7)
  - ALANINE AMINOTRANSFERASE INCREASED [None]
  - ASPARTATE AMINOTRANSFERASE INCREASED [None]
  - BLOOD ALKALINE PHOSPHATASE INCREASED [None]
  - DEHYDRATION [None]
  - GAMMA-GLUTAMYLTRANSFERASE INCREASED [None]
  - HEPATIC FUNCTION ABNORMAL [None]
  - MALAISE [None]
